FAERS Safety Report 14037512 (Version 1)
Quarter: 2017Q4

REPORT INFORMATION
  Report Type: Spontaneous
  Country: US (occurrence: US)
  Receive Date: 20171004
  Receipt Date: 20171004
  Transmission Date: 20180321
  Serious: No
  Sender: FDA-Public Use
  Company Number: US-AMGEN-USASP2017148352

PATIENT
  Sex: Male

DRUGS (2)
  1. LIMBREL [Concomitant]
     Active Substance: DIETARY SUPPLEMENT\FLAVOCOXID
     Dosage: 500 MG, UNK
  2. ENBREL [Suspect]
     Active Substance: ETANERCEPT
     Indication: RHEUMATOID ARTHRITIS
     Dosage: 50 MG, QWK
     Route: 058
     Dates: start: 20150304, end: 20170927

REACTIONS (1)
  - Drug effect decreased [Not Recovered/Not Resolved]
